FAERS Safety Report 4381157-8 (Version None)
Quarter: 2004Q2

REPORT INFORMATION
  Report Type: 
  Country: None (occurrence: None)
  Receive Date: 20040614
  Receipt Date: 20040527
  Transmission Date: 20050107
  Serious: Yes (Life-Threatening, Hospitalization)
  Sender: FDA-Public Use
  Company Number: 2004-UK-00370UK

PATIENT
  Age: 75 Year
  Sex: Female

DRUGS (8)
  1. MICARDIS [Suspect]
     Indication: HYPERTENSION
     Dosage: 80 MG (80 MG), PO
     Route: 048
     Dates: start: 20031119
  2. ATENOLOL [Concomitant]
  3. AMLODIPINE [Concomitant]
  4. ALENDRONIC ACID (ALENDRONIC ACID) [Concomitant]
  5. CALCICHEW D3 FORTE [Concomitant]
  6. CO-DYDRAMOL (PARAMOL-118) [Concomitant]
  7. AMITRIPTYLINE HCL [Concomitant]
  8. PROPRANOLOL [Concomitant]

REACTIONS (2)
  - GALLBLADDER PERFORATION [None]
  - PERITONITIS [None]
